FAERS Safety Report 9668860 (Version 1)
Quarter: 2013Q4

REPORT INFORMATION
  Report Type: Spontaneous
  Country: CN (occurrence: CN)
  Receive Date: 20131105
  Receipt Date: 20131105
  Transmission Date: 20140711
  Serious: Yes (Death, Hospitalization)
  Sender: FDA-Public Use
  Company Number: PHHY2013CN125097

PATIENT
  Age: 1 Month
  Sex: Male

DRUGS (1)
  1. OXCARBAZEPINE [Suspect]
     Indication: EPILEPSY
     Dosage: UNK
     Route: 048
     Dates: start: 20100307

REACTIONS (9)
  - Systemic lupus erythematosus [Fatal]
  - Renal failure acute [Recovering/Resolving]
  - Renal hypertension [Recovering/Resolving]
  - Azotaemia [Recovering/Resolving]
  - Nephrogenic anaemia [Recovering/Resolving]
  - Pericardial effusion [Recovering/Resolving]
  - Myocarditis [Recovering/Resolving]
  - Cardiomyopathy [Recovering/Resolving]
  - Cardiac function test abnormal [Recovering/Resolving]
